FAERS Safety Report 21331650 (Version 1)
Quarter: 2022Q3

REPORT INFORMATION
  Report Type: Spontaneous
  Country: US (occurrence: None)
  Receive Date: 20220913
  Receipt Date: 20220913
  Transmission Date: 20221027
  Serious: No
  Sender: FDA-Public Use
  Company Number: None

PATIENT
  Age: 47 Year
  Sex: Male

DRUGS (1)
  1. ENBREL [Suspect]
     Active Substance: ETANERCEPT
     Route: 058
     Dates: start: 201209

REACTIONS (4)
  - Hypoaesthesia [None]
  - Hypoaesthesia [None]
  - Central nervous system lesion [None]
  - Magnetic resonance imaging head abnormal [None]

NARRATIVE: CASE EVENT DATE: 20220913
